FAERS Safety Report 24096466 (Version 1)
Quarter: 2024Q3

REPORT INFORMATION
  Report Type: Spontaneous
  Country: US (occurrence: US)
  Receive Date: 20240716
  Receipt Date: 20240716
  Transmission Date: 20241017
  Serious: No
  Sender: BLUEPRINT MEDICINES
  Company Number: US-Blueprint Medicines Corporation-4160

PATIENT
  Sex: Male

DRUGS (1)
  1. AYVAKIT [Suspect]
     Active Substance: AVAPRITINIB
     Indication: Advanced systemic mastocytosis
     Route: 048
     Dates: start: 20240627

REACTIONS (6)
  - Herpes zoster [Unknown]
  - Vitamin B complex deficiency [Unknown]
  - Vitamin D decreased [Unknown]
  - Blood potassium decreased [Unknown]
  - Fatigue [Unknown]
  - Drug interaction [Unknown]
